FAERS Safety Report 18438281 (Version 2)
Quarter: 2020Q4

REPORT INFORMATION
  Report Type: Report from Study
  Country: NL (occurrence: NL)
  Receive Date: 20201029
  Receipt Date: 20201030
  Transmission Date: 20210114
  Serious: Yes (Life-Threatening, Hospitalization)
  Sender: FDA-Public Use
  Company Number: NL-ROCHE-2701632

PATIENT
  Age: 42 Year
  Sex: Female

DRUGS (6)
  1. CARBOPLATIN. [Suspect]
     Active Substance: CARBOPLATIN
     Indication: HER2 POSITIVE BREAST CANCER
     Dosage: 3AUC, ON DAY 1 AND DAY 8 OF THE THREE WEEKLY CYCLES, MOST CURRENT ADMINISTRATION: 12/OCT/2020
     Route: 042
     Dates: start: 20200914
  2. PACLITAXEL. [Suspect]
     Active Substance: PACLITAXEL
     Indication: HER2 POSITIVE BREAST CANCER
     Dosage: ON DAY 1 AND DAY 8 OF THE THREE WEEKLY CYCLES, MOST CURRENT ADMINISTRATION: 05/OCT/2020
     Route: 042
     Dates: start: 20200914
  3. OMEPRAZOLE. [Concomitant]
     Active Substance: OMEPRAZOLE
     Dates: start: 20200929
  4. DOMPERIDONE [Concomitant]
     Active Substance: DOMPERIDONE
     Dates: start: 20201001
  5. PERTUZUMAB. [Suspect]
     Active Substance: PERTUZUMAB
     Indication: HER2 POSITIVE BREAST CANCER
     Dosage: ON DAY 1 OF THE CYCLE, MOST CURRENT ADMINISTRATION: 05/OCT/2020
     Route: 042
     Dates: start: 20200914
  6. TRASTUZUMAB. [Suspect]
     Active Substance: TRASTUZUMAB
     Indication: HER2 POSITIVE BREAST CANCER
     Dosage: ON DAY 1 OF THE CYCLE, MOST CURRENT ADMINISTRATION: 05/OCT/2020
     Route: 041
     Dates: start: 20200914

REACTIONS (1)
  - Hypokalaemia [Unknown]

NARRATIVE: CASE EVENT DATE: 20201022
